FAERS Safety Report 12985696 (Version 1)
Quarter: 2016Q4

REPORT INFORMATION
  Report Type: Spontaneous
  Country: US (occurrence: US)
  Receive Date: 20161130
  Receipt Date: 20161130
  Transmission Date: 20170207
  Serious: No
  Sender: FDA-Public Use
  Company Number: US-ASTRAZENECA-2016SF23667

PATIENT
  Age: 21860 Day
  Sex: Male

DRUGS (10)
  1. FLONASE ALLERGY RELIEF [Concomitant]
     Active Substance: FLUTICASONE PROPIONATE
  2. RIBAVIRIN. [Concomitant]
     Active Substance: RIBAVIRIN
     Dates: start: 20150617, end: 20150909
  3. VIEKIRA PAK [Interacting]
     Active Substance: DASABUVIR\OMBITASVIR\PARITAPREVIR\RITONAVIR
     Indication: CHRONIC HEPATITIS C
     Dosage: TAKE AS DIRECTED IN THE AM AND PM (2 IN 1 D)
     Route: 048
     Dates: start: 20150617, end: 20150909
  4. LOSARTAN. [Concomitant]
     Active Substance: LOSARTAN
  5. FISH OIL [Concomitant]
     Active Substance: FISH OIL
  6. VITAMIN E [Concomitant]
     Active Substance: .ALPHA.-TOCOPHEROL
  7. VITAMIN C [Concomitant]
     Active Substance: ASCORBIC ACID
  8. SYMBICORT [Suspect]
     Active Substance: BUDESONIDE\FORMOTEROL FUMARATE DIHYDRATE
     Route: 055
  9. ADVAIR DISKUS [Concomitant]
     Active Substance: FLUTICASONE PROPIONATE\SALMETEROL XINAFOATE
  10. ASPIRIN. [Concomitant]
     Active Substance: ASPIRIN

REACTIONS (1)
  - Drug interaction [Recovered/Resolved]

NARRATIVE: CASE EVENT DATE: 20150617
